FAERS Safety Report 7245694-0 (Version None)
Quarter: 2011Q1

REPORT INFORMATION
  Report Type: 
  Country: None (occurrence: None)
  Receive Date: 20110126
  Receipt Date: 20110117
  Transmission Date: 20110831
  Serious: Yes (Hospitalization)
  Sender: FDA-Public Use
  Company Number: US-ELI_LILLY_AND_COMPANY-US201010005174

PATIENT
  Sex: Male

DRUGS (20)
  1. GEMCITABINE HYDROCHLORIDE [Suspect]
     Indication: PANCREATIC CARCINOMA METASTATIC
     Dosage: 1000 MG/M2, UNKNOWN
     Route: 065
     Dates: start: 20101012
  2. MORPHINE SULFATE [Concomitant]
     Route: 048
     Dates: start: 20100805, end: 20101108
  3. LOTREL [Concomitant]
     Indication: HYPERTENSION
     Route: 048
  4. PREVACID [Concomitant]
     Indication: DYSPEPSIA
     Route: 048
     Dates: start: 20100905
  5. DIAZEPAM [Concomitant]
     Indication: ANXIETY
     Route: 048
     Dates: start: 20100913
  6. ONDANSETRON [Concomitant]
     Indication: NAUSEA
     Dosage: 8 MG, UNK
     Route: 048
     Dates: start: 20101012
  7. COMPAZINE [Concomitant]
     Indication: NAUSEA
     Route: 048
     Dates: start: 20101012
  8. GLIMEPIRIDE [Concomitant]
     Indication: DIABETES MELLITUS
     Dosage: UNK, UNK
     Route: 048
     Dates: end: 19900101
  9. FERROUS SULFATE TAB [Concomitant]
     Indication: ANAEMIA
     Route: 048
     Dates: start: 20100805
  10. SENOKOT [Concomitant]
     Indication: CONSTIPATION
     Route: 048
     Dates: start: 20101012
  11. ZOFRAN [Concomitant]
     Indication: NAUSEA
     Dosage: UNK, UNK
     Route: 048
     Dates: start: 20101012
  12. PHENERGAN [Concomitant]
     Indication: COUGH
     Route: 048
     Dates: start: 20100905
  13. PROCHLORPERAZINE [Concomitant]
     Indication: NAUSEA
     Dosage: 10 MG, UNK
     Route: 048
     Dates: start: 20101012
  14. GAS RELIEF [Concomitant]
     Indication: FLATULENCE
     Route: 048
     Dates: start: 20100805
  15. OXYCODONE [Concomitant]
     Indication: PAIN
     Dosage: 2 D/F, 4/D
     Route: 048
     Dates: start: 20101001
  16. PACLITAXEL [Suspect]
     Indication: PANCREATIC CARCINOMA METASTATIC
     Dosage: 125 MG/M2, WEEKLY (1/W)
     Route: 065
     Dates: start: 20101012
  17. MORPHINE SULFATE [Concomitant]
     Indication: PAIN
     Dosage: 60 MG, UNK
     Route: 048
  18. ESOMEPRAZOLE [Concomitant]
     Indication: GASTROOESOPHAGEAL REFLUX DISEASE
     Dosage: 20 MG, UNK
     Route: 048
  19. METFORMIN AND SITAGLIPTIN [Concomitant]
  20. AMLODIPINE [Concomitant]
     Indication: HYPERTENSION

REACTIONS (1)
  - DEHYDRATION [None]
